FAERS Safety Report 16114621 (Version 4)
Quarter: 2019Q2

REPORT INFORMATION
  Report Type: Spontaneous
  Country: FR (occurrence: FR)
  Receive Date: 20190325
  Receipt Date: 20190507
  Transmission Date: 20190711
  Serious: Yes (Life-Threatening)
  Sender: FDA-Public Use
  Company Number: PHHY2019FR066476

PATIENT
  Age: 65 Year
  Sex: Male
  Weight: 120 kg

DRUGS (7)
  1. CUBICIN [Suspect]
     Active Substance: DAPTOMYCIN
     Indication: OSTEITIS
     Dosage: 1200 G, UNK
     Route: 042
     Dates: start: 20190123, end: 20190123
  2. PIPERACILLINSODIUM+TAZOBACTAMSODIUM [Suspect]
     Active Substance: PIPERACILLIN SODIUM\TAZOBACTAM SODIUM
     Indication: OSTEITIS
     Dosage: 20 OT, UNK
     Route: 042
     Dates: start: 20190123, end: 20190127
  3. GENTAMICIN SULFATE. [Suspect]
     Active Substance: GENTAMICIN SULFATE
     Indication: OSTEITIS
     Dosage: 450 MG, UNK
     Route: 042
     Dates: start: 20190123, end: 20190123
  4. PIPERACILLINSODIUM+TAZOBACTAMSODIUM [Suspect]
     Active Substance: PIPERACILLIN SODIUM\TAZOBACTAM SODIUM
     Dosage: 12 OT, UNK
     Route: 042
  5. VANCOMYCINE SANDOZ [Suspect]
     Active Substance: VANCOMYCIN
     Indication: OSTEITIS
     Dosage: 6 G (3 G AND 3 G IN BOLUS)
     Route: 042
     Dates: start: 20190123, end: 20190125
  6. IOMERON [Suspect]
     Active Substance: IOMEPROL
     Indication: SCAN WITH CONTRAST
     Dosage: UNK
     Route: 042
     Dates: start: 20190124, end: 20190124
  7. AMIKACINE [Suspect]
     Active Substance: AMIKACIN
     Indication: OSTEITIS
     Dosage: UNK
     Route: 042
     Dates: start: 20190123, end: 20190123

REACTIONS (2)
  - Acute kidney injury [Recovered/Resolved]
  - Condition aggravated [Unknown]

NARRATIVE: CASE EVENT DATE: 20190125
